FAERS Safety Report 6334859-8 (Version None)
Quarter: 2009Q3

REPORT INFORMATION
  Report Type: 
  Country: None (occurrence: None)
  Receive Date: 20090827
  Receipt Date: 20090821
  Transmission Date: 20100115
  Serious: Yes (Other)
  Sender: FDA-Public Use
  Company Number: US-1169624

PATIENT
  Age: 32 Year
  Sex: Female
  Weight: 77.1115 kg

DRUGS (8)
  1. VIGAMOX [Suspect]
     Indication: ANTIBIOTIC THERAPY
     Dosage: OPHTHALMIC
     Route: 047
     Dates: start: 20090513, end: 20090519
  2. OMNIPRED [Suspect]
     Indication: EYE INFLAMMATION
     Dosage: OPHTHALMIC
     Route: 047
     Dates: start: 20090513, end: 20090519
  3. AZOPT [Suspect]
     Indication: GLAUCOMA
     Dosage: 1 GTT IN OD 1PM OPHTHALMIC, 1 GTT IN OU OPHTHALMIC
     Route: 047
     Dates: start: 20090518, end: 20090518
  4. AZOPT [Suspect]
     Indication: GLAUCOMA
     Dosage: 1 GTT IN OD 1PM OPHTHALMIC, 1 GTT IN OU OPHTHALMIC
     Route: 047
     Dates: start: 20090513, end: 20090519
  5. AZOPT [Suspect]
  6. COSOPT [Concomitant]
  7. ALPHAGAN [Concomitant]
  8. PILOCARPINE HCL [Concomitant]

REACTIONS (1)
  - EPISTAXIS [None]
